FAERS Safety Report 16425452 (Version 1)
Quarter: 2019Q2

REPORT INFORMATION
  Report Type: Spontaneous
  Country: NL (occurrence: NL)
  Receive Date: 20190613
  Receipt Date: 20190613
  Transmission Date: 20190711
  Serious: Yes (Hospitalization)
  Sender: FDA-Public Use
  Company Number: NL-ASTRAZENECA-2019SE84882

PATIENT
  Sex: Female

DRUGS (3)
  1. PREDNISOLON [Suspect]
     Active Substance: PREDNISOLONE
     Indication: ARTHRITIS
     Dosage: REDUCED DOSE
     Route: 048
     Dates: start: 201808
  2. OMEPRAZOL [Suspect]
     Active Substance: OMEPRAZOLE
     Indication: PROPHYLAXIS AGAINST GASTROINTESTINAL ULCER
     Route: 048
     Dates: start: 201808, end: 201905
  3. PREDNISOLON [Suspect]
     Active Substance: PREDNISOLONE
     Indication: ARTHRITIS
     Dosage: UNKNOWN
     Route: 048
     Dates: start: 201808

REACTIONS (2)
  - Fatigue [Recovered/Resolved]
  - Atrial fibrillation [Unknown]
